FAERS Safety Report 19422961 (Version 1)
Quarter: 2021Q2

REPORT INFORMATION
  Report Type: Spontaneous
  Country: US (occurrence: US)
  Receive Date: 20210616
  Receipt Date: 20210616
  Transmission Date: 20210717
  Serious: Yes (Death)
  Sender: FDA-Public Use
  Company Number: None

PATIENT
  Age: 61 Year
  Sex: Female
  Weight: 72.57 kg

DRUGS (2)
  1. REMDESIVIR 100MG [Suspect]
     Active Substance: REMDESIVIR
     Dosage: ?          OTHER DOSE:200MG X 1, 100MG;OTHER ROUTE:IVPB?
     Dates: start: 20210511, end: 20210515
  2. MEROPENEM. [Suspect]
     Active Substance: MEROPENEM
     Dosage: ?          OTHER ROUTE:IVPB?
     Dates: start: 20210512, end: 20210519

REACTIONS (1)
  - Death [None]

NARRATIVE: CASE EVENT DATE: 20210529
